FAERS Safety Report 18939297 (Version 2)
Quarter: 2021Q2

REPORT INFORMATION
  Report Type: Spontaneous
  Country: US (occurrence: US)
  Receive Date: 20210224
  Receipt Date: 20210406
  Transmission Date: 20210717
  Serious: No
  Sender: FDA-Public Use
  Company Number: US-BAUSCH-BL-2021-003111

PATIENT
  Age: 73 Year
  Sex: Male
  Weight: 84.44 kg

DRUGS (3)
  1. TRULANCE [Suspect]
     Active Substance: PLECANATIDE
     Indication: RECTAL TENESMUS
     Dosage: AROUND 2 YEARS AGO PRIOR TO THE REPORT
     Route: 048
     Dates: start: 201812
  2. PERI?COLACE [Concomitant]
     Active Substance: CASANTHRANOL\DOCUSATE SODIUM
     Indication: PRODUCT USED FOR UNKNOWN INDICATION
  3. MAGNESIUM CITRATE. [Concomitant]
     Active Substance: MAGNESIUM CITRATE
     Indication: PRODUCT USED FOR UNKNOWN INDICATION

REACTIONS (3)
  - Diarrhoea [Unknown]
  - Therapeutic product effect incomplete [Unknown]
  - Constipation [Not Recovered/Not Resolved]
